FAERS Safety Report 17787985 (Version 2)
Quarter: 2020Q2

REPORT INFORMATION
  Report Type: Spontaneous
  Country: CA (occurrence: CA)
  Receive Date: 20200515
  Receipt Date: 20200612
  Transmission Date: 20200714
  Serious: Yes (Other)
  Sender: FDA-Public Use
  Company Number: CA-CELLTRION INC.-2020CA021259

PATIENT

DRUGS (9)
  1. INFLECTRA [Suspect]
     Active Substance: INFLIXIMAB-DYYB
     Dosage: 325 MG (5 MG/KG) Q (EVERY) 0,2, 6 WEEKS, THEN EVERY 6 WEEKS
     Route: 042
     Dates: start: 20200606
  2. INFLECTRA [Suspect]
     Active Substance: INFLIXIMAB-DYYB
     Indication: ANKYLOSING SPONDYLITIS
     Dosage: 325 MG (5 MG/KG) Q (EVERY) 0,2, 6 WEEKS, THEN EVERY 6 WEEKS
     Route: 042
     Dates: start: 20200425, end: 20200425
  3. INFLECTRA [Suspect]
     Active Substance: INFLIXIMAB-DYYB
     Dosage: 325 MG (5 MG/KG) Q (EVERY) 0,2, 6 WEEKS, THEN EVERY 6 WEEKS
     Route: 042
     Dates: start: 20200509
  4. INFLECTRA [Suspect]
     Active Substance: INFLIXIMAB-DYYB
     Dosage: 325 MG (5 MG/KG) Q (EVERY) 0,2, 6 WEEKS, THEN EVERY 6 WEEKS
     Route: 042
     Dates: start: 20200509
  5. CHOLECALCIFEROL [Concomitant]
     Active Substance: CHOLECALCIFEROL
     Dosage: 1000 IU, 1X/DAY
     Route: 048
  6. SALBUTAMOL SULFATE [Concomitant]
     Active Substance: ALBUTEROL SULFATE
     Dosage: 100 UG
     Route: 065
  7. FLUOXETINE HCL [Concomitant]
     Active Substance: FLUOXETINE HYDROCHLORIDE
     Dosage: 10 MG, DAILY
     Route: 048
  8. LORAZEPAM. [Concomitant]
     Active Substance: LORAZEPAM
     Dosage: 1 MG, AS NEEDED
     Route: 048
  9. MESALAZINE [Concomitant]
     Active Substance: MESALAMINE
     Dosage: 1000 MG, DAILY

REACTIONS (8)
  - Haemoglobinuria [Unknown]
  - Chills [Recovered/Resolved]
  - pH urine increased [Unknown]
  - Off label use [Unknown]
  - Nausea [Unknown]
  - Rectal haemorrhage [Unknown]
  - Intentional product use issue [Unknown]
  - Headache [Unknown]

NARRATIVE: CASE EVENT DATE: 20200425
